FAERS Safety Report 11032815 (Version 1)
Quarter: 2015Q2

REPORT INFORMATION
  Report Type: Spontaneous
  Country: US (occurrence: US)
  Receive Date: 20150415
  Receipt Date: 20150415
  Transmission Date: 20150821
  Serious: Yes (Death)
  Sender: FDA-Public Use
  Company Number: US-ELI_LILLY_AND_COMPANY-US201504003289

PATIENT
  Age: 53 Year
  Sex: Male

DRUGS (10)
  1. ALIMTA [Suspect]
     Active Substance: PEMETREXED DISODIUM
     Indication: LUNG ADENOCARCINOMA
     Route: 042
  2. DECADRON [Concomitant]
     Active Substance: DEXAMETHASONE
  3. CARBOPLATIN. [Concomitant]
     Active Substance: CARBOPLATIN
     Indication: LUNG ADENOCARCINOMA
     Route: 065
  4. FOLIC ACID. [Concomitant]
     Active Substance: FOLIC ACID
  5. MORPHINE SULFATE. [Concomitant]
     Active Substance: MORPHINE SULFATE
  6. LACTULOSE. [Concomitant]
     Active Substance: LACTULOSE
  7. KEPPRA [Concomitant]
     Active Substance: LEVETIRACETAM
  8. ZOLOFT [Concomitant]
     Active Substance: SERTRALINE HYDROCHLORIDE
  9. COMPAZINE [Concomitant]
     Active Substance: PROCHLORPERAZINE MALEATE
  10. OXYCODONE [Concomitant]
     Active Substance: OXYCODONE

REACTIONS (3)
  - Abdominal pain [Unknown]
  - Death [Fatal]
  - Off label use [Unknown]

NARRATIVE: CASE EVENT DATE: 20150402
